FAERS Safety Report 16040839 (Version 2)
Quarter: 2019Q1

REPORT INFORMATION
  Report Type: Report from Study
  Country: ZA (occurrence: ZA)
  Receive Date: 20190306
  Receipt Date: 20190320
  Transmission Date: 20190418
  Serious: Yes (Hospitalization)
  Sender: FDA-Public Use
  Company Number: ZA-SA-2019SA056162

PATIENT
  Age: 65 Year
  Sex: Male

DRUGS (5)
  1. OPTISULIN (INSULIN GLARGINE) [Suspect]
     Active Substance: INSULIN GLARGINE
     Dosage: BED TIME- 20 U, HS
     Dates: start: 20190206
  2. GLUCOPHAGE [Concomitant]
     Active Substance: METFORMIN HYDROCHLORIDE
     Dosage: AFTER BREAKFAST- 1000 MG AND AFTER SUPPER- 1000 MG, BID
     Dates: start: 20190219
  3. DIAGLUCIDE [Concomitant]
     Active Substance: GLICLAZIDE
     Dosage: AFTER BREAKFAST- 120 MG, QD
     Dates: start: 20190219
  4. ASPAVOR [Concomitant]
     Active Substance: ATORVASTATIN
     Dosage: AFTER BREAK FAST- 20 MG, QD
     Dates: start: 20190219
  5. AMLOC [AMLODIPINE BESILATE] [Concomitant]
     Active Substance: AMLODIPINE BESYLATE
     Dosage: AFTER BREAFAST- 10 MG, QD
     Dates: start: 20190219

REACTIONS (4)
  - Abdominal pain [Not Recovered/Not Resolved]
  - Abdominal discomfort [Not Recovered/Not Resolved]
  - Obstruction [Not Recovered/Not Resolved]
  - Duodenal perforation [Not Recovered/Not Resolved]

NARRATIVE: CASE EVENT DATE: 20190225
